FAERS Safety Report 21209358 (Version 2)
Quarter: 2023Q1

REPORT INFORMATION
  Report Type: Spontaneous
  Country: US (occurrence: None)
  Receive Date: 20220813
  Receipt Date: 20230328
  Transmission Date: 20230418
  Serious: Yes (Hospitalization, Other)
  Sender: FDA-Public Use
  Company Number: 2022A280441

PATIENT
  Age: 13762 Day
  Sex: Male
  Weight: 125 kg

DRUGS (32)
  1. PRILOSEC OTC [Suspect]
     Active Substance: OMEPRAZOLE MAGNESIUM
     Indication: Gastrooesophageal reflux disease
     Route: 048
     Dates: start: 2008
  2. PRILOSEC OTC [Suspect]
     Active Substance: OMEPRAZOLE MAGNESIUM
     Indication: Gastrooesophageal reflux disease
     Route: 048
     Dates: start: 20080101
  3. PRILOSEC OTC [Suspect]
     Active Substance: OMEPRAZOLE MAGNESIUM
     Indication: Gastrooesophageal reflux disease
     Route: 048
     Dates: start: 2008, end: 2012
  4. NEXIUM [Suspect]
     Active Substance: ESOMEPRAZOLE MAGNESIUM
     Route: 048
     Dates: start: 20080101
  5. OMEPRAZOLE [Suspect]
     Active Substance: OMEPRAZOLE
     Dates: start: 20110324
  6. HYDROCHLOROTHIAZIDE [Concomitant]
     Active Substance: HYDROCHLOROTHIAZIDE
     Indication: Diuretic therapy
     Dates: start: 20151109, end: 20190709
  7. NAPROXEN [Concomitant]
     Active Substance: NAPROXEN
     Indication: Inflammation
     Dates: start: 20151125
  8. LISINOPRIL [Concomitant]
     Active Substance: LISINOPRIL
     Indication: Blood pressure measurement
     Dates: start: 20160422, end: 20190709
  9. ATORVASTATIN [Concomitant]
     Active Substance: ATORVASTATIN
     Indication: Blood cholesterol
     Dates: start: 20161128, end: 20191212
  10. AZITHROMYCIN [Concomitant]
     Active Substance: AZITHROMYCIN
     Indication: Infection
     Dates: start: 20180113
  11. LOSARTAN [Concomitant]
     Active Substance: LOSARTAN
     Indication: Blood pressure measurement
     Dates: start: 20181220, end: 20191224
  12. ALLOPURINOL [Concomitant]
     Active Substance: ALLOPURINOL
     Indication: Gout
     Dates: start: 20181220, end: 20191224
  13. DOCUSATE [Concomitant]
     Active Substance: DOCUSATE
  14. ACETAMINOPHEN [Concomitant]
     Active Substance: ACETAMINOPHEN
  15. BISACODYL [Concomitant]
     Active Substance: BISACODYL
  16. CEPACOL [Concomitant]
     Active Substance: BENZOCAINE
  17. OXYCODONE [Concomitant]
     Active Substance: OXYCODONE
  18. ONDANSETRON [Concomitant]
     Active Substance: ONDANSETRON
  19. RESVERATROL/CHOLINE/CHROMIUM/NICOTINAMIDE/ACETYLCYSTEINE/MANGANESE/THI [Concomitant]
  20. VITAMIN D3 [Concomitant]
     Active Substance: CHOLECALCIFEROL
  21. LANCET [Concomitant]
  22. FLUTICASONE [Concomitant]
     Active Substance: FLUTICASONE
  23. GABAPENTIN [Concomitant]
     Active Substance: GABAPENTIN
  24. NICOTINE [Concomitant]
     Active Substance: NICOTINE
  25. METOPROLOL [Concomitant]
     Active Substance: METOPROLOL
  26. SEROQUEL [Concomitant]
     Active Substance: QUETIAPINE FUMARATE
  27. KENALOG [Concomitant]
     Active Substance: TRIAMCINOLONE ACETONIDE
  28. LOTRIMIN [Concomitant]
     Active Substance: CLOTRIMAZOLE
  29. CIALIS [Concomitant]
     Active Substance: TADALAFIL
  30. ZYRTEC [Concomitant]
     Active Substance: CETIRIZINE HYDROCHLORIDE
  31. VIAGRA [Concomitant]
     Active Substance: SILDENAFIL CITRATE
  32. EFFEXOR [Concomitant]
     Active Substance: VENLAFAXINE HYDROCHLORIDE

REACTIONS (7)
  - Acute kidney injury [Not Recovered/Not Resolved]
  - Chronic kidney disease [Not Recovered/Not Resolved]
  - Renal failure [Unknown]
  - Hyperparathyroidism secondary [Unknown]
  - Renal hypertension [Unknown]
  - Chronic kidney disease-mineral and bone disorder [Unknown]
  - Rebound acid hypersecretion [Unknown]

NARRATIVE: CASE EVENT DATE: 20090701
